FAERS Safety Report 5708723-9 (Version None)
Quarter: 2008Q2

REPORT INFORMATION
  Report Type: 
  Country: None (occurrence: None)
  Receive Date: 20080410
  Receipt Date: 20080409
  Transmission Date: 20081010
  Serious: Yes (Other)
  Sender: FDA-Public Use
  Company Number: AECAN200800049

PATIENT
  Age: 69 Year
  Sex: Male

DRUGS (1)
  1. PLASBUMIN-25 [Suspect]
     Indication: POSTOPERATIVE CARE
     Dosage: 30 ML; TOTAL;IV
     Route: 042
     Dates: start: 20070406, end: 20070406

REACTIONS (1)
  - HYPOTENSION [None]
